FAERS Safety Report 5245939-2 (Version None)
Quarter: 2007Q1

REPORT INFORMATION
  Report Type: 
  Country: None (occurrence: None)
  Receive Date: 20070221
  Receipt Date: 20070206
  Transmission Date: 20070707
  Serious: Yes (Hospitalization)
  Sender: FDA-Public Use
  Company Number: THYR-10400

PATIENT
  Sex: Female

DRUGS (1)
  1. THYROGEN [Suspect]
     Indication: POSTOPERATIVE CARE
     Dosage: 0.9 MG ONCE IV
     Route: 042
     Dates: start: 20070206, end: 20070206

REACTIONS (3)
  - HYPOTENSION [None]
  - MEDICATION ERROR [None]
  - TREMOR [None]
